FAERS Safety Report 16922157 (Version 1)
Quarter: 2019Q4

REPORT INFORMATION
  Report Type: Report from Study
  Country: None (occurrence: AT)
  Receive Date: 20191015
  Receipt Date: 20191015
  Transmission Date: 20200122
  Serious: Yes (Death, Hospitalization)
  Sender: FDA-Public Use
  Company Number: AT-ABBVIE-19K-009-2941644-00

PATIENT
  Age: 69 Year
  Sex: Male

DRUGS (2)
  1. DUODOPA [Suspect]
     Active Substance: CARBIDOPA\LEVODOPA
     Indication: PARKINSON^S DISEASE
     Dosage: 24H, MD: 2.7ML, CR DAYTIME: 1.1ML, ED: 1.5ML?20 MG/ML 5 MG/ML
     Route: 050
     Dates: start: 20141104
  2. DUODOPA [Suspect]
     Active Substance: CARBIDOPA\LEVODOPA
     Dosage: THEREFORE THE CONTINUOUS DAILY RATE WAS DECREASED
     Route: 050
     Dates: end: 2019

REACTIONS (5)
  - Pneumonia [Unknown]
  - General physical health deterioration [Unknown]
  - Death [Fatal]
  - Restlessness [Recovering/Resolving]
  - Weight decreased [Recovering/Resolving]

NARRATIVE: CASE EVENT DATE: 2019
